FAERS Safety Report 12980680 (Version 1)
Quarter: 2016Q4

REPORT INFORMATION
  Report Type: Spontaneous
  Country: US (occurrence: US)
  Receive Date: 20161128
  Receipt Date: 20161128
  Transmission Date: 20170207
  Serious: Yes (Other)
  Sender: FDA-Public Use
  Company Number: ALCN2016US007854

PATIENT
  Age: 43 Year
  Sex: Male

DRUGS (1)
  1. ATROPINE SULFATE. [Suspect]
     Active Substance: ATROPINE SULFATE
     Indication: PRODUCT USED FOR UNKNOWN INDICATION
     Dosage: 5 ML BOTTLE
     Route: 048

REACTIONS (12)
  - Delirium [Recovered/Resolved]
  - Mydriasis [Recovered/Resolved]
  - Skin warm [Recovered/Resolved]
  - Tachycardia [Recovered/Resolved]
  - Anticholinergic syndrome [Recovered/Resolved]
  - Agitation [Recovered/Resolved]
  - Tachypnoea [Recovered/Resolved]
  - Hypertension [Recovered/Resolved]
  - Accidental exposure to product [Unknown]
  - Pupillary reflex impaired [Recovered/Resolved]
  - Hyperthermia [Recovered/Resolved]
  - Dry skin [Recovered/Resolved]
